FAERS Safety Report 14026635 (Version 4)
Quarter: 2017Q4

REPORT INFORMATION
  Report Type: Spontaneous
  Country: US (occurrence: US)
  Receive Date: 20170929
  Receipt Date: 20171024
  Transmission Date: 20180321
  Serious: Yes (Hospitalization)
  Sender: FDA-Public Use
  Company Number: US-VIFOR (INTERNATIONAL) INC.-VIT-2017-09844

PATIENT
  Age: 75 Year
  Sex: Male
  Weight: 74.91 kg

DRUGS (23)
  1. COLCHICINE. [Concomitant]
     Active Substance: COLCHICINE
  2. SINEMET CR [Concomitant]
     Active Substance: CARBIDOPA\LEVODOPA
  3. SYMBICORT [Concomitant]
     Active Substance: BUDESONIDE\FORMOTEROL FUMARATE DIHYDRATE
  4. FAMOTIDINE. [Concomitant]
     Active Substance: FAMOTIDINE
  5. NITROSTAT [Concomitant]
     Active Substance: NITROGLYCERIN
  6. NORVASC [Concomitant]
     Active Substance: AMLODIPINE BESYLATE
  7. SODIUM BICARBONATE. [Concomitant]
     Active Substance: SODIUM BICARBONATE
  8. ACETYLSALICYLIC ACID [Concomitant]
     Active Substance: ASPIRIN
  9. HYDROCHLOROTHIAZIDE~~LISINOPRIL [Concomitant]
  10. NORCO [Concomitant]
     Active Substance: ACETAMINOPHEN\HYDROCODONE BITARTRATE
  11. SINGULAIR [Concomitant]
     Active Substance: MONTELUKAST SODIUM
  12. VELTASSA [Suspect]
     Active Substance: PATIROMER
     Indication: HYPERKALAEMIA
     Route: 048
     Dates: start: 20160607
  13. SALBUTAMOL SULFATE [Concomitant]
     Active Substance: ALBUTEROL SULFATE
  14. LIPITOR [Concomitant]
     Active Substance: ATORVASTATIN CALCIUM
  15. LEVOTHYROXINE SODIUM. [Concomitant]
     Active Substance: LEVOTHYROXINE SODIUM
  16. METOPROLOL TARTRATE. [Concomitant]
     Active Substance: METOPROLOL TARTRATE
  17. SEROQUEL [Concomitant]
     Active Substance: QUETIAPINE FUMARATE
  18. ZOFRAN [Concomitant]
     Active Substance: ONDANSETRON HYDROCHLORIDE
  19. FERROUS SULFATE. [Concomitant]
     Active Substance: FERROUS SULFATE
  20. ALLOPURINOL. [Concomitant]
     Active Substance: ALLOPURINOL
  21. PROTONIX [Concomitant]
     Active Substance: PANTOPRAZOLE SODIUM
  22. DOCUSATE SODIUM. [Concomitant]
     Active Substance: DOCUSATE SODIUM
  23. FLOMAX [Concomitant]
     Active Substance: TAMSULOSIN HYDROCHLORIDE

REACTIONS (7)
  - Cholecystitis infective [Recovering/Resolving]
  - Feeding disorder [Recovering/Resolving]
  - Abdominal pain upper [Recovering/Resolving]
  - Nausea [Recovering/Resolving]
  - Cholelithiasis [Recovered/Resolved]
  - Pain [Recovering/Resolving]
  - Cataract [Recovered/Resolved]

NARRATIVE: CASE EVENT DATE: 2017
